FAERS Safety Report 13897737 (Version 2)
Quarter: 2017Q4

REPORT INFORMATION
  Report Type: Spontaneous
  Country: US (occurrence: US)
  Receive Date: 20170823
  Receipt Date: 20171005
  Transmission Date: 20180320
  Serious: No
  Sender: FDA-Public Use
  Company Number: US-PFIZER INC-2017362734

PATIENT
  Age: 71 Year
  Sex: Female

DRUGS (1)
  1. METHOTREXATE SODIUM. [Suspect]
     Active Substance: METHOTREXATE SODIUM
     Indication: RHEUMATOID ARTHRITIS
     Dosage: 1.0 ML, WEEKLY
     Route: 048

REACTIONS (6)
  - Weight decreased [Unknown]
  - Hand deformity [Unknown]
  - Joint range of motion decreased [Unknown]
  - Nausea [Unknown]
  - Alopecia [Recovered/Resolved]
  - Nodule [Recovered/Resolved]
